FAERS Safety Report 5199430-2 (Version None)
Quarter: 2006Q4

REPORT INFORMATION
  Report Type: 
  Country: None (occurrence: None)
  Receive Date: 20061229
  Receipt Date: 20061226
  Transmission Date: 20070319
  Serious: Yes (Other)
  Sender: FDA-Public Use
  Company Number: CIP06002999

PATIENT
  Age: 78 Year
  Sex: Male

DRUGS (3)
  1. ACTONEL [Suspect]
     Indication: OSTEOPOROSIS
     Dosage: 35 MG ONCE WEEKLY, ORAL
     Route: 048
     Dates: start: 20060101, end: 20060901
  2. ACTONEL [Suspect]
     Indication: OSTEOPOROSIS
     Dosage: 35 MG ONCE WEEKLY, ORAL
     Route: 048
     Dates: start: 20061221
  3. OMEGA 3 (FISH OIL) [Concomitant]

REACTIONS (2)
  - RENAL CELL CARCINOMA STAGE UNSPECIFIED [None]
  - WEIGHT DECREASED [None]
